FAERS Safety Report 15448838 (Version 1)
Quarter: 2018Q3

REPORT INFORMATION
  Report Type: Spontaneous
  Country: US (occurrence: US)
  Receive Date: 20180930
  Receipt Date: 20180930
  Transmission Date: 20181010
  Serious: No
  Sender: FDA-Public Use
  Company Number: US-JNJFOC-20180914278

PATIENT
  Sex: Male

DRUGS (2)
  1. INVEGA [Suspect]
     Active Substance: PALIPERIDONE
     Indication: DEPRESSION
     Route: 048
  2. INVEGA [Suspect]
     Active Substance: PALIPERIDONE
     Indication: PSYCHOTIC DISORDER
     Route: 048

REACTIONS (1)
  - Drug dose omission [Unknown]

NARRATIVE: CASE EVENT DATE: 2016
